FAERS Safety Report 21629873 (Version 1)
Quarter: 2022Q4

REPORT INFORMATION
  Report Type: Spontaneous
  Country: US (occurrence: None)
  Receive Date: 20221122
  Receipt Date: 20221122
  Transmission Date: 20230113
  Serious: Yes (unspecified)
  Sender: FDA-Public Use
  Company Number: None

PATIENT
  Age: 53 Year
  Sex: Female
  Weight: 67.4 kg

DRUGS (3)
  1. FERRLECIT [Suspect]
     Active Substance: SODIUM FERRIC GLUCONATE COMPLEX
     Indication: Iron deficiency anaemia
     Dosage: FREQUENCY : ONCE;?
     Route: 041
     Dates: start: 20221121, end: 20221121
  2. Diphenhydramine 50 mg IVP [Concomitant]
     Dates: start: 20221121, end: 20221121
  3. Hydrocortisone 100 mg IVP [Concomitant]
     Dates: start: 20221121, end: 20221121

REACTIONS (4)
  - Infusion related reaction [None]
  - Pruritus [None]
  - Erythema [None]
  - Peripheral swelling [None]

NARRATIVE: CASE EVENT DATE: 20221121
